FAERS Safety Report 10253524 (Version 1)
Quarter: 2014Q2

REPORT INFORMATION
  Report Type: Spontaneous
  Country: US (occurrence: US)
  Receive Date: 20140623
  Receipt Date: 20140623
  Transmission Date: 20141212
  Serious: No
  Sender: FDA-Public Use
  Company Number: US-ZOGENIX, INC.-2011ZX000476

PATIENT
  Age: 39 Year
  Sex: Female
  Weight: 53.57 kg

DRUGS (6)
  1. SUMAVEL DOSEPRO [Suspect]
     Indication: MIGRAINE
  2. SUMAVEL DOSEPRO [Suspect]
  3. TOPAMAX [Concomitant]
     Indication: MIGRAINE
  4. NAMENDA [Concomitant]
     Indication: MIGRAINE
  5. PROMETHAZINE [Concomitant]
     Indication: MIGRAINE
  6. VIT B 12 [Concomitant]
     Indication: PRODUCT USED FOR UNKNOWN INDICATION

REACTIONS (3)
  - Injection site haemorrhage [Recovered/Resolved]
  - Injection site extravasation [Recovered/Resolved]
  - Drug ineffective [Recovered/Resolved]
